FAERS Safety Report 5460130-2 (Version None)
Quarter: 2007Q3

REPORT INFORMATION
  Report Type: 
  Country: None (occurrence: None)
  Receive Date: 20070919
  Receipt Date: 20070515
  Transmission Date: 20080115
  Serious: Yes (Other)
  Sender: FDA-Public Use
  Company Number: US-ASTRAZENECA-2007UW12082

PATIENT
  Age: 63 Year
  Sex: Female
  Weight: 81.6 kg

DRUGS (6)
  1. SEROQUEL [Suspect]
     Indication: ANXIETY
     Route: 048
     Dates: start: 20070401
  2. SEROQUEL [Suspect]
     Indication: DEPRESSION
     Route: 048
     Dates: start: 20070401
  3. NIFEDIPINE [Concomitant]
  4. MAXZIDE [Concomitant]
  5. ADVIL LIQUI-GELS [Concomitant]
  6. CYMBALTA [Concomitant]

REACTIONS (3)
  - BLOOD PRESSURE INCREASED [None]
  - JOINT SWELLING [None]
  - PALPITATIONS [None]
